FAERS Safety Report 5994984-8 (Version None)
Quarter: 2008Q4

REPORT INFORMATION
  Report Type: 
  Country: None (occurrence: None)
  Receive Date: 20081212
  Receipt Date: 20081202
  Transmission Date: 20090506
  Serious: Yes (Death)
  Sender: FDA-Public Use
  Company Number: TW-SANOFI-SYNTHELABO-A01200815517

PATIENT
  Age: 64 Year
  Sex: Male

DRUGS (8)
  1. ANTIHISTAMINE NOS [Concomitant]
     Indication: PREMEDICATION
  2. STEROID NOS [Concomitant]
     Indication: PREMEDICATION
  3. FLUOROURACIL [Concomitant]
     Indication: METASTASES TO LUNG
     Dosage: UNK
  4. FLUOROURACIL [Concomitant]
     Indication: HEPATIC NEOPLASM
     Dosage: UNK
  5. LEUCOVORIN CALCIUM [Concomitant]
     Indication: METASTASES TO LUNG
     Dosage: UNK
  6. LEUCOVORIN CALCIUM [Concomitant]
     Indication: HEPATIC NEOPLASM
     Dosage: UNK
  7. OXALIPLATIN [Suspect]
     Indication: METASTASES TO LUNG
     Dosage: UNK
  8. OXALIPLATIN [Suspect]
     Indication: HEPATIC NEOPLASM
     Dosage: UNK

REACTIONS (2)
  - DRUG HYPERSENSITIVITY [None]
  - THROMBOCYTOPENIA [None]
